FAERS Safety Report 7924583-X (Version None)
Quarter: 2011Q4

REPORT INFORMATION
  Report Type: 
  Country: None (occurrence: None)
  Receive Date: 20111117
  Receipt Date: 20110323
  Transmission Date: 20120403
  Serious: No
  Sender: FDA-Public Use
  Company Number: US-AMGEN-USASP2011015717

PATIENT
  Age: 46 Year
  Sex: Female
  Weight: 95.238 kg

DRUGS (16)
  1. LASIX [Concomitant]
     Dosage: 20 MG, UNK
  2. SULFASALAZINE [Concomitant]
     Dosage: 500 MG, UNK
  3. LOVASTATIN [Concomitant]
     Dosage: 10 MG, UNK
  4. KLONOPIN [Concomitant]
     Dosage: 1 MG, UNK
  5. ASPIRIN [Concomitant]
     Dosage: 81 MG, UNK
  6. ATENOLOL [Concomitant]
     Dosage: 25 MG, UNK
  7. CLARITIN                           /00413701/ [Concomitant]
     Dosage: 10 MG, UNK
  8. CYMBALTA [Concomitant]
     Dosage: 20 MG, UNK
  9. SEROQUEL [Concomitant]
     Dosage: 25 MG, UNK
  10. IRON [Concomitant]
     Dosage: 18 MG, UNK
  11. ENBREL [Suspect]
     Indication: PRODUCT USED FOR UNKNOWN INDICATION
     Dosage: 50 MG, QWK
  12. PROTONIX [Concomitant]
     Dosage: 20 MG, UNK
  13. FOLIC ACID [Concomitant]
     Dosage: 20 MG, UNK
  14. LYRICA [Concomitant]
     Dosage: 100 MG, UNK
  15. MOBIC [Concomitant]
     Dosage: 7.5 MG, UNK
  16. POTASSIUM CHLORIDE [Concomitant]
     Dosage: 10 MEQ, UNK

REACTIONS (1)
  - INFLUENZA [None]
